FAERS Safety Report 5306683-6 (Version None)
Quarter: 2007Q2

REPORT INFORMATION
  Report Type: 
  Country: None (occurrence: None)
  Receive Date: 20070424
  Receipt Date: 20070413
  Transmission Date: 20071010
  Serious: Yes (Death, Other)
  Sender: FDA-Public Use
  Company Number: DE-PFIZER INC-2007030706

PATIENT
  Age: 45 Year
  Sex: Female

DRUGS (4)
  1. LYRICA [Suspect]
     Dosage: DAILY DOSE:600MG-FREQ:DAILY
  2. AMITRIPTYLINE HCL [Concomitant]
  3. ALL OTHER THERAPEUTIC PRODUCTS [Concomitant]
  4. ROCEPHIN [Concomitant]
     Indication: BORRELIA INFECTION

REACTIONS (3)
  - COMA [None]
  - PSYCHOTIC DISORDER [None]
  - SOMNOLENCE [None]
